FAERS Safety Report 9130441 (Version 3)
Quarter: 2013Q2

REPORT INFORMATION
  Report Type: Spontaneous
  Country: US (occurrence: US)
  Receive Date: 20130301
  Receipt Date: 20130403
  Transmission Date: 20140414
  Serious: Yes (Other)
  Sender: FDA-Public Use
  Company Number: US-AMGEN-USASP2013012395

PATIENT
  Age: 19 Year
  Sex: Male
  Weight: 51.6 kg

DRUGS (22)
  1. ARANESP [Suspect]
     Indication: NEPHROGENIC ANAEMIA
     Dosage: 60 MUG, QWK
     Route: 058
     Dates: start: 20120212, end: 20130313
  2. SENSIPAR [Concomitant]
     Indication: HYPERPARATHYROIDISM SECONDARY
     Dosage: 30 MG, QD
  3. FOLIC ACID [Concomitant]
  4. FOLIC ACID [Concomitant]
  5. FOLIC ACID [Concomitant]
  6. FOLIC ACID [Concomitant]
  7. AMLODIPINE [Concomitant]
  8. AMLODIPINE [Concomitant]
  9. AMLODIPINE [Concomitant]
  10. AMLODIPINE [Concomitant]
  11. HECTOROL [Concomitant]
     Dosage: 5 MUG, UNK
  12. CALCIUM ACETATE [Concomitant]
     Dosage: 2 TO 3 TABLETS WITH MEALS.
  13. RENVELA [Concomitant]
     Dosage: 2400 UNK, TID
  14. VITAMIN B12                        /00056201/ [Concomitant]
     Dosage: 1000 MUG, UNK
  15. VITAMIN D2 [Concomitant]
     Dosage: 50000 UNIT, UNK
  16. TYLENOL /00020001/ [Concomitant]
  17. HECTOROL 5 MCG [Concomitant]
  18. CALCIUM ACETATE 2 TO 3 TABLETS WITH MEALS [Concomitant]
  19. RENVELA THREE TIMES DAILY [Concomitant]
  20. VITAMIN B12 1000 MCG [Concomitant]
  21. VITAMIN D2 50,000 UNITS [Concomitant]
  22. TYLENOL [Concomitant]

REACTIONS (2)
  - Haemoglobin decreased [Not Recovered/Not Resolved]
  - Drug effect incomplete [Not Recovered/Not Resolved]
